FAERS Safety Report 15111559 (Version 1)
Quarter: 2018Q3

REPORT INFORMATION
  Report Type: Spontaneous
  Country: IN (occurrence: IN)
  Receive Date: 20180705
  Receipt Date: 20180705
  Transmission Date: 20181010
  Serious: Yes (Death, Life-Threatening, Hospitalization)
  Sender: FDA-Public Use
  Company Number: IN-JNJFOC-20180434492

PATIENT

DRUGS (28)
  1. DOXORUBICIN HYDROCHLORIDE. [Suspect]
     Active Substance: DOXORUBICIN HYDROCHLORIDE
     Indication: BREAST CANCER
     Dosage: MEDIAN CUMULATIVE DOSE OF DOXORUBICIN WAS 275 MG/M2
     Route: 065
  2. TRASTUZUMAB. [Suspect]
     Active Substance: TRASTUZUMAB
     Indication: SOFT TISSUE SARCOMA
     Dosage: MEDIAN CUMULATIVE DOSE OF DOXORUBICIN WAS 275 MG/M2
     Route: 065
  3. TRASTUZUMAB. [Suspect]
     Active Substance: TRASTUZUMAB
     Indication: HODGKIN^S DISEASE
     Dosage: MEDIAN CUMULATIVE DOSE OF DOXORUBICIN WAS 275 MG/M2
     Route: 065
  4. MITOXANTRONE [Suspect]
     Active Substance: MITOXANTRONE HYDROCHLORIDE
     Indication: SOFT TISSUE SARCOMA
     Dosage: MEDIAN CUMULATIVE DOSE OF DOXORUBICIN WAS 275 MG/M2
     Route: 065
  5. PACLITAXEL. [Suspect]
     Active Substance: PACLITAXEL
     Indication: ACUTE LYMPHOCYTIC LEUKAEMIA
     Dosage: MEDIAN CUMULATIVE DOSE OF DOXORUBICIN WAS 275 MG/M2
     Route: 065
  6. TRASTUZUMAB. [Suspect]
     Active Substance: TRASTUZUMAB
     Indication: OSTEOSARCOMA
     Dosage: MEDIAN CUMULATIVE DOSE OF DOXORUBICIN WAS 275 MG/M2
     Route: 065
  7. TRASTUZUMAB. [Suspect]
     Active Substance: TRASTUZUMAB
     Indication: ACUTE LYMPHOCYTIC LEUKAEMIA
     Dosage: MEDIAN CUMULATIVE DOSE OF DOXORUBICIN WAS 275 MG/M2
     Route: 065
  8. MITOXANTRONE [Suspect]
     Active Substance: MITOXANTRONE HYDROCHLORIDE
     Indication: ACUTE LYMPHOCYTIC LEUKAEMIA
     Dosage: MEDIAN CUMULATIVE DOSE OF DOXORUBICIN WAS 275 MG/M2
     Route: 065
  9. DOXORUBICIN HYDROCHLORIDE. [Suspect]
     Active Substance: DOXORUBICIN HYDROCHLORIDE
     Indication: PRIMITIVE NEUROECTODERMAL TUMOUR
     Dosage: MEDIAN CUMULATIVE DOSE OF DOXORUBICIN WAS 275 MG/M2
     Route: 065
  10. DOXORUBICIN HYDROCHLORIDE. [Suspect]
     Active Substance: DOXORUBICIN HYDROCHLORIDE
     Indication: OSTEOSARCOMA
     Dosage: MEDIAN CUMULATIVE DOSE OF DOXORUBICIN WAS 275 MG/M2
     Route: 065
  11. PACLITAXEL. [Suspect]
     Active Substance: PACLITAXEL
     Indication: PRIMITIVE NEUROECTODERMAL TUMOUR
     Dosage: MEDIAN CUMULATIVE DOSE OF DOXORUBICIN WAS 275 MG/M2
     Route: 065
  12. MITOXANTRONE [Suspect]
     Active Substance: MITOXANTRONE HYDROCHLORIDE
     Indication: BREAST CANCER
     Dosage: MEDIAN CUMULATIVE DOSE OF DOXORUBICIN WAS 275 MG/M2
     Route: 065
  13. DOXORUBICIN HYDROCHLORIDE. [Suspect]
     Active Substance: DOXORUBICIN HYDROCHLORIDE
     Indication: HODGKIN^S DISEASE
     Dosage: MEDIAN CUMULATIVE DOSE OF DOXORUBICIN WAS 275 MG/M2
     Route: 065
  14. PACLITAXEL. [Suspect]
     Active Substance: PACLITAXEL
     Indication: BREAST CANCER
     Dosage: MEDIAN CUMULATIVE DOSE OF DOXORUBICIN WAS 275 MG/M2
     Route: 065
  15. PACLITAXEL. [Suspect]
     Active Substance: PACLITAXEL
     Indication: HODGKIN^S DISEASE
     Dosage: MEDIAN CUMULATIVE DOSE OF DOXORUBICIN WAS 275 MG/M2
     Route: 065
  16. TRASTUZUMAB. [Suspect]
     Active Substance: TRASTUZUMAB
     Indication: BREAST CANCER
     Dosage: MEDIAN CUMULATIVE DOSE OF DOXORUBICIN WAS 275 MG/M2
     Route: 065
  17. TRASTUZUMAB. [Suspect]
     Active Substance: TRASTUZUMAB
     Indication: PRIMITIVE NEUROECTODERMAL TUMOUR
     Dosage: MEDIAN CUMULATIVE DOSE OF DOXORUBICIN WAS 275 MG/M2
     Route: 065
  18. TRASTUZUMAB. [Suspect]
     Active Substance: TRASTUZUMAB
     Indication: NON-HODGKIN^S LYMPHOMA
     Dosage: MEDIAN CUMULATIVE DOSE OF DOXORUBICIN WAS 275 MG/M2
     Route: 065
  19. MITOXANTRONE [Suspect]
     Active Substance: MITOXANTRONE HYDROCHLORIDE
     Indication: PRIMITIVE NEUROECTODERMAL TUMOUR
     Dosage: MEDIAN CUMULATIVE DOSE OF DOXORUBICIN WAS 275 MG/M2
     Route: 065
  20. MITOXANTRONE [Suspect]
     Active Substance: MITOXANTRONE HYDROCHLORIDE
     Indication: HODGKIN^S DISEASE
     Dosage: MEDIAN CUMULATIVE DOSE OF DOXORUBICIN WAS 275 MG/M2
     Route: 065
  21. DOXORUBICIN HYDROCHLORIDE. [Suspect]
     Active Substance: DOXORUBICIN HYDROCHLORIDE
     Indication: ACUTE LYMPHOCYTIC LEUKAEMIA
     Dosage: MEDIAN CUMULATIVE DOSE OF DOXORUBICIN WAS 275 MG/M2
     Route: 065
  22. PACLITAXEL. [Suspect]
     Active Substance: PACLITAXEL
     Indication: SOFT TISSUE SARCOMA
     Dosage: MEDIAN CUMULATIVE DOSE OF DOXORUBICIN WAS 275 MG/M2
     Route: 065
  23. PACLITAXEL. [Suspect]
     Active Substance: PACLITAXEL
     Indication: NON-HODGKIN^S LYMPHOMA
     Dosage: MEDIAN CUMULATIVE DOSE OF DOXORUBICIN WAS 275 MG/M2
     Route: 065
  24. DOXORUBICIN HYDROCHLORIDE. [Suspect]
     Active Substance: DOXORUBICIN HYDROCHLORIDE
     Indication: SOFT TISSUE SARCOMA
     Dosage: MEDIAN CUMULATIVE DOSE OF DOXORUBICIN WAS 275 MG/M2
     Route: 065
  25. DOXORUBICIN HYDROCHLORIDE. [Suspect]
     Active Substance: DOXORUBICIN HYDROCHLORIDE
     Indication: NON-HODGKIN^S LYMPHOMA
     Dosage: MEDIAN CUMULATIVE DOSE OF DOXORUBICIN WAS 275 MG/M2
     Route: 065
  26. PACLITAXEL. [Suspect]
     Active Substance: PACLITAXEL
     Indication: OSTEOSARCOMA
     Dosage: MEDIAN CUMULATIVE DOSE OF DOXORUBICIN WAS 275 MG/M2
     Route: 065
  27. MITOXANTRONE [Suspect]
     Active Substance: MITOXANTRONE HYDROCHLORIDE
     Indication: OSTEOSARCOMA
     Dosage: MEDIAN CUMULATIVE DOSE OF DOXORUBICIN WAS 275 MG/M2
     Route: 065
  28. MITOXANTRONE [Suspect]
     Active Substance: MITOXANTRONE HYDROCHLORIDE
     Indication: NON-HODGKIN^S LYMPHOMA
     Dosage: MEDIAN CUMULATIVE DOSE OF DOXORUBICIN WAS 275 MG/M2
     Route: 065

REACTIONS (3)
  - Off label use [Unknown]
  - Product use in unapproved indication [Unknown]
  - Cardiomyopathy [Fatal]
